FAERS Safety Report 17224744 (Version 2)
Quarter: 2020Q1

REPORT INFORMATION
  Report Type: Report from Study
  Country: NL (occurrence: NL)
  Receive Date: 20200102
  Receipt Date: 20200107
  Transmission Date: 20200409
  Serious: Yes (Other)
  Sender: FDA-Public Use
  Company Number: NL-PFIZER INC-2019560707

PATIENT

DRUGS (4)
  1. VINCRISTINE [Concomitant]
     Active Substance: VINCRISTINE
     Indication: LUNG NEOPLASM MALIGNANT
     Dosage: 2 MG, CYCLIC (2MG DAY 1 AND 8 EVERY 4 WEEKS)
     Route: 040
  2. GLUCOSE [Concomitant]
     Active Substance: DEXTROSE
     Dosage: 250 ML, UNK (30 MN I.V. INFUSION ON DAY 1)
     Route: 042
  3. CARBOPLATIN. [Suspect]
     Active Substance: CARBOPLATIN
     Indication: LUNG NEOPLASM MALIGNANT
     Dosage: 400 MG/M2, CYCLIC (DAY 1) (30 MN I.V. INFUSION ON DAY 1)
     Route: 042
  4. CARBOPLATIN. [Suspect]
     Active Substance: CARBOPLATIN
     Dosage: UNK (SECOND COURSE)
     Route: 042

REACTIONS (1)
  - Renal impairment [Unknown]
